APPROVED DRUG PRODUCT: DIALYTE CONCENTRATE W/ DEXTROSE 50% IN PLASTIC CONTAINER
Active Ingredient: CALCIUM CHLORIDE; DEXTROSE; MAGNESIUM CHLORIDE; SODIUM ACETATE; SODIUM CHLORIDE
Strength: 510MG/100ML;50GM/100ML;200MG/100ML;9.2GM/100ML;9.6GM/100ML
Dosage Form/Route: SOLUTION;INTRAPERITONEAL
Application: N018807 | Product #002
Applicant: B BRAUN MEDICAL INC
Approved: Aug 26, 1983 | RLD: No | RS: No | Type: DISCN